FAERS Safety Report 8795589 (Version 1)
Quarter: 2012Q4

REPORT INFORMATION
  Report Type: 
  Country: US (occurrence: US)
  Receive Date: 20120917
  Receipt Date: 20120917
  Transmission Date: 20130627
  Serious: Yes (Hospitalization, Other)
  Sender: FDA-Public Use
  Company Number: US-US-EMD SERONO, INC.-7160324

PATIENT
  Age: 50 None
  Sex: Male

DRUGS (1)
  1. REBIF [Suspect]
     Indication: MULTIPLE SCLEROSIS
     Route: 058
     Dates: start: 20100902

REACTIONS (4)
  - Cervical vertebral fracture [Recovering/Resolving]
  - Loss of consciousness [Unknown]
  - Road traffic accident [Recovered/Resolved]
  - Memory impairment [Unknown]
